FAERS Safety Report 9829245 (Version 1)
Quarter: 2014Q1

REPORT INFORMATION
  Report Type: Report from Study
  Country: US (occurrence: US)
  Receive Date: 20140120
  Receipt Date: 20140120
  Transmission Date: 20141002
  Serious: Yes (Other)
  Sender: FDA-Public Use
  Company Number: US-ROCHE-1334892

PATIENT
  Age: 13 Year
  Sex: Male
  Weight: 41.1 kg

DRUGS (2)
  1. NUTROPIN AQ [Suspect]
     Indication: GROWTH HORMONE DEFICIENCY
     Route: 058
  2. FOCALIN XR [Concomitant]
     Route: 048

REACTIONS (1)
  - Attention deficit/hyperactivity disorder [Unknown]
